FAERS Safety Report 4548759-7 (Version None)
Quarter: 2005Q1

REPORT INFORMATION
  Report Type: 
  Country: None (occurrence: None)
  Receive Date: 20050107
  Receipt Date: 20050107
  Transmission Date: 20050727
  Serious: Yes (Life-Threatening)
  Sender: FDA-Public Use
  Company Number: None

PATIENT
  Sex: Female
  Weight: 113.8529 kg

DRUGS (3)
  1. ENBREL [Suspect]
     Indication: RHEUMATOID ARTHRITIS
     Dosage: 25MG  B.I.W. SUBCUTANEOUS
     Route: 058
     Dates: start: 20000101, end: 20041101
  2. PROTONIX [Concomitant]
  3. SEVERAL NSAIDS [Concomitant]

REACTIONS (1)
  - GASTRIC CANCER [None]
